FAERS Safety Report 20629058 (Version 2)
Quarter: 2023Q1

REPORT INFORMATION
  Report Type: Report from Study
  Country: US (occurrence: None)
  Receive Date: 20220323
  Receipt Date: 20230216
  Transmission Date: 20230418
  Serious: Yes (Other)
  Sender: FDA-Public Use
  Company Number: US-ROCHE-3056344

PATIENT
  Age: 50 Year
  Sex: Female

DRUGS (4)
  1. PLACEBO [Suspect]
     Active Substance: UNSPECIFIED INGREDIENT
     Indication: Invasive breast carcinoma
     Route: 041
  2. PACLITAXEL [Suspect]
     Active Substance: PACLITAXEL
     Indication: Invasive breast carcinoma
     Route: 042
  3. PERTUZUMAB [Suspect]
     Active Substance: PERTUZUMAB
     Indication: Invasive breast carcinoma
     Dosage: LOADING DOSE 840 MG FOLLOWED BY MAINTENANCE DOSE OF 420 MG
     Route: 042
  4. TRASTUZUMAB [Suspect]
     Active Substance: TRASTUZUMAB
     Indication: Invasive breast carcinoma
     Dosage: LOADING DOSE FOLLOWED BY MAINTENACE DOSE OF 420 MG
     Route: 041

REACTIONS (1)
  - Anaemia [Unknown]

NARRATIVE: CASE EVENT DATE: 20201102
